FAERS Safety Report 19674991 (Version 3)
Quarter: 2022Q1

REPORT INFORMATION
  Report Type: Report from Study
  Country: US (occurrence: None)
  Receive Date: 20210809
  Receipt Date: 20220216
  Transmission Date: 20220423
  Serious: Yes (Hospitalization)
  Sender: FDA-Public Use
  Company Number: US-ROCHE-2885581

PATIENT
  Age: 70 Year
  Sex: Male
  Weight: 88.2 kg

DRUGS (1)
  1. ATEZOLIZUMAB [Suspect]
     Active Substance: ATEZOLIZUMAB
     Indication: Alveolar soft part sarcoma
     Dosage: ON 25-JAN-2021, THE PATIENT RECEIVED LAST DOSE PRIOR TO SAE ONSET.?SUBSEQUENT DOSE ON :08/OCT/2019,
     Route: 041
     Dates: start: 20191008

REACTIONS (3)
  - Atrial fibrillation [Recovered/Resolved]
  - Vertigo [Recovering/Resolving]
  - Blood thyroid stimulating hormone increased [Unknown]

NARRATIVE: CASE EVENT DATE: 20200302
